FAERS Safety Report 12081851 (Version 1)
Quarter: 2016Q1

REPORT INFORMATION
  Report Type: Spontaneous
  Country: NZ (occurrence: NZ)
  Receive Date: 20160216
  Receipt Date: 20160216
  Transmission Date: 20160526
  Serious: Yes (Hospitalization)
  Sender: FDA-Public Use
  Company Number: NZ-MYLANLABS-2016M1005316

PATIENT

DRUGS (1)
  1. SODIUM TETRADECYL SULFATE [Suspect]
     Active Substance: SODIUM TETRADECYL SULFATE
     Indication: PRODUCT USED FOR UNKNOWN INDICATION
     Dosage: (5 ML, 3%) WAS INJECTED INTO PROXIMAL LEFT GSV, 3% SMALL SAPHENOUS VEIN, 1.5% INT RIGHT GSV, 3% I
     Route: 065

REACTIONS (1)
  - Acute myocardial infarction [Recovered/Resolved]
